FAERS Safety Report 4349364-8 (Version None)
Quarter: 2004Q2

REPORT INFORMATION
  Report Type: 
  Country: None (occurrence: None)
  Receive Date: 20040426
  Receipt Date: 20040420
  Transmission Date: 20050107
  Serious: Yes (Hospitalization)
  Sender: FDA-Public Use
  Company Number: FR-JNJFOC-20040404036

PATIENT
  Age: 15 Year
  Sex: Male

DRUGS (6)
  1. HALDOL [Suspect]
     Indication: BIPOLAR I DISORDER
     Dosage: 2.5 MG,  IN 1 DAY, ORAL
     Route: 048
     Dates: start: 20040227, end: 20040229
  2. THERALENE (ALIMEMAZIEN TARTRATE) [Suspect]
     Indication: SLEEP DISORDER
     Dosage: 50 MG,  IN 1 DAY, ORAL
     Route: 048
     Dates: start: 20040227, end: 20040229
  3. TERCIAN (CYAMEMAZINE) [Concomitant]
     Dosage: 100 DOSE(S),  IN 1 DAY, ORAL
     Route: 048
     Dates: start: 20040227, end: 20040229
  4. ANAFRANIL [Suspect]
     Indication: BIPOLAR I DISORDER
     Dosage: 75 MG,  IN 1 DAY, ORAL
     Route: 048
     Dates: start: 20040227, end: 20040229
  5. CLONAZEPAM [Concomitant]
  6. LEXOMIL (BROMAZEPAM) [Concomitant]

REACTIONS (3)
  - DYSKINESIA [None]
  - TORTICOLLIS [None]
  - URINARY RETENTION [None]
